FAERS Safety Report 5284376-1 (Version None)
Quarter: 2007Q1

REPORT INFORMATION
  Report Type: 
  Country: None (occurrence: None)
  Receive Date: 20070330
  Receipt Date: 20070330
  Transmission Date: 20070707
  Serious: Yes (Other)
  Sender: FDA-Public Use
  Company Number: None

PATIENT
  Age: 50 Year
  Sex: Male
  Weight: 83.0083 kg

DRUGS (2)
  1. ZOLOFT [Suspect]
     Indication: NEUROPATHY
     Dosage: SIG ONE TIME QHS; ORAL
     Route: 048
     Dates: start: 19970101, end: 20070101
  2. ZOLOFT [Suspect]
     Indication: SLEEP DISORDER
     Dosage: SIG ONE TIME QHS; ORAL
     Route: 048
     Dates: start: 19970101, end: 20070101

REACTIONS (7)
  - ANXIETY [None]
  - DIZZINESS [None]
  - DRUG WITHDRAWAL SYNDROME [None]
  - HEADACHE [None]
  - INSOMNIA [None]
  - MOOD SWINGS [None]
  - NAUSEA [None]
